FAERS Safety Report 14547333 (Version 4)
Quarter: 2018Q4

REPORT INFORMATION
  Report Type: Report from Study
  Country: CA (occurrence: CA)
  Receive Date: 20180219
  Receipt Date: 20181128
  Transmission Date: 20190204
  Serious: Yes (Other)
  Sender: FDA-Public Use
  Company Number: PHHY2017CA180283

PATIENT
  Age: 74 Year
  Sex: Male

DRUGS (2)
  1. GLEEVEC [Suspect]
     Active Substance: IMATINIB MESYLATE
     Indication: GASTROINTESTINAL STROMAL TUMOUR
     Dosage: 400 MG, QD
     Route: 048
     Dates: start: 20171201
  2. GLEEVEC [Suspect]
     Active Substance: IMATINIB MESYLATE
     Dosage: 400 MG, BID
     Route: 048

REACTIONS (21)
  - Malignant neoplasm progression [Unknown]
  - Excessive cerumen production [Unknown]
  - Gait disturbance [Unknown]
  - Asthenia [Unknown]
  - Fatigue [Unknown]
  - Abdominal distension [Unknown]
  - Dizziness [Unknown]
  - Gastrointestinal stromal tumour [Unknown]
  - Pain [Recovered/Resolved]
  - Arthralgia [Unknown]
  - Rash papular [Recovering/Resolving]
  - Dyspnoea [Unknown]
  - Pollakiuria [Unknown]
  - Memory impairment [Unknown]
  - Peripheral swelling [Unknown]
  - Nausea [Unknown]
  - Acne [Unknown]
  - Vitamin B12 decreased [Unknown]
  - Hypoacusis [Unknown]
  - Abdominal pain [Unknown]
  - Dry skin [Unknown]

NARRATIVE: CASE EVENT DATE: 20181117
